FAERS Safety Report 16327761 (Version 3)
Quarter: 2019Q2

REPORT INFORMATION
  Report Type: Spontaneous
  Country: VN (occurrence: VN)
  Receive Date: 20190517
  Receipt Date: 20190522
  Transmission Date: 20190711
  Serious: No
  Sender: FDA-Public Use
  Company Number: VN-009507513-1905VNM008153

PATIENT
  Sex: Female
  Weight: 57 kg

DRUGS (2)
  1. ETONOGESTREL IMPLANT- UNKNOWN [Suspect]
     Active Substance: ETONOGESTREL
     Indication: CONTRACEPTION
     Dosage: IMPLANT
     Route: 058
     Dates: start: 20151007, end: 20180926
  2. IMPLANON [Suspect]
     Active Substance: ETONOGESTREL
     Indication: CONTRACEPTION
     Dosage: UNK
     Route: 058
     Dates: start: 20180926

REACTIONS (4)
  - Breast fibrosis [Unknown]
  - Breast mass [Unknown]
  - General symptom [Unknown]
  - Poor quality device used [Unknown]

NARRATIVE: CASE EVENT DATE: 201902
